FAERS Safety Report 9715382 (Version 4)
Quarter: 2014Q1

REPORT INFORMATION
  Report Type: Report from Study
  Country: US (occurrence: US)
  Receive Date: 20131127
  Receipt Date: 20140122
  Transmission Date: 20141002
  Serious: Yes (Other)
  Sender: FDA-Public Use
  Company Number: US-BIOGENIDEC-2013BI112485

PATIENT
  Age: 49 Year
  Sex: Male
  Weight: 109 kg

DRUGS (9)
  1. TYSABRI [Suspect]
     Indication: CROHN^S DISEASE
     Route: 042
     Dates: start: 20091116
  2. MORPHINE [Concomitant]
     Indication: CROHN^S DISEASE
     Route: 048
     Dates: start: 2011
  3. PERCOCET [Concomitant]
     Indication: CROHN^S DISEASE
     Route: 048
     Dates: start: 2011
  4. CITALOPRAM [Concomitant]
     Indication: DEPRESSION
     Route: 048
     Dates: start: 201005
  5. ZOLPIDEM [Concomitant]
     Indication: INSOMNIA
     Route: 048
     Dates: start: 201303
  6. GABAPENTIN [Concomitant]
     Indication: NEUROPATHY PERIPHERAL
     Route: 048
     Dates: start: 201106
  7. SERTRALINE [Concomitant]
  8. BUPROPION [Concomitant]
     Route: 048
  9. NIZORAL 2% [Concomitant]

REACTIONS (1)
  - Squamous cell carcinoma of skin [Recovered/Resolved]
